FAERS Safety Report 6824846-5 (Version None)
Quarter: 2010Q3

REPORT INFORMATION
  Report Type: 
  Country: None (occurrence: None)
  Receive Date: 20100708
  Receipt Date: 20061130
  Transmission Date: 20110219
  Serious: No
  Sender: FDA-Public Use
  Company Number: US-PFIZER INC-2006151846

PATIENT
  Sex: Female
  Weight: 52.62 kg

DRUGS (7)
  1. CHANTIX [Suspect]
     Indication: EX-TOBACCO USER
     Dates: start: 20061101, end: 20061101
  2. LOVASTATIN [Concomitant]
  3. GABAPENTIN [Concomitant]
  4. ZETIA [Concomitant]
  5. BISOPROLOL [Concomitant]
  6. VALSARTAN [Concomitant]
  7. ESTRADIOL [Concomitant]
     Dates: end: 20060101

REACTIONS (2)
  - INFLUENZA LIKE ILLNESS [None]
  - VOMITING [None]
